FAERS Safety Report 10377757 (Version 1)
Quarter: 2014Q3

REPORT INFORMATION
  Report Type: Spontaneous
  Country: VE (occurrence: VE)
  Receive Date: 20140812
  Receipt Date: 20140812
  Transmission Date: 20150326
  Serious: Yes (Hospitalization)
  Sender: FDA-Public Use
  Company Number: PHHY2014VE099154

PATIENT
  Sex: Male

DRUGS (2)
  1. TRILEPTAL [Suspect]
     Active Substance: OXCARBAZEPINE
     Indication: EPILEPSY
     Dosage: 1200 MG, DAILY
     Route: 048
     Dates: start: 2008, end: 20140806
  2. LAMICTAL [Concomitant]
     Active Substance: LAMOTRIGINE
     Indication: CONVULSION
     Dosage: 100 MG, UNK
     Dates: start: 201405

REACTIONS (2)
  - Head injury [Not Recovered/Not Resolved]
  - Convulsion [Not Recovered/Not Resolved]
